FAERS Safety Report 8052745-2 (Version None)
Quarter: 2012Q1

REPORT INFORMATION
  Report Type: 
  Country: None (occurrence: None)
  Receive Date: 20120111
  Receipt Date: 20110711
  Transmission Date: 20120608
  Serious: Yes (Other)
  Sender: FDA-Public Use
  Company Number: 2011-04548

PATIENT
  Sex: Male

DRUGS (2)
  1. ENGERIX-B [Suspect]
     Indication: IMMUNISATION
     Dosage: 1.0 ML  IM
     Route: 030
  2. TUBERSOL [Suspect]
     Indication: TUBERCULIN TEST
     Dosage: 0.1 ML,

REACTIONS (9)
  - CONVULSION [None]
  - PALLOR [None]
  - HEART RATE DECREASED [None]
  - ASTHENIA [None]
  - LOSS OF CONSCIOUSNESS [None]
  - SYNCOPE [None]
  - PRESYNCOPE [None]
  - BLOOD PRESSURE DECREASED [None]
  - TREMOR [None]
